FAERS Safety Report 9831113 (Version 1)
Quarter: 2014Q1

REPORT INFORMATION
  Report Type: Spontaneous
  Country: NL (occurrence: NL)
  Receive Date: 20140121
  Receipt Date: 20140121
  Transmission Date: 20141002
  Serious: Yes (Death)
  Sender: FDA-Public Use
  Company Number: NL-AMGEN-NLDSP2014003104

PATIENT
  Sex: Female

DRUGS (2)
  1. XGEVA [Suspect]
     Indication: PROPHYLAXIS
     Dosage: 120 MG, QMO
     Route: 065
     Dates: start: 20131107
  2. NEULASTA [Suspect]
     Indication: NEUTROPENIA
     Dosage: 6 MG, Q3WK
     Route: 065
     Dates: start: 20131212

REACTIONS (1)
  - Death [Fatal]
